FAERS Safety Report 9177787 (Version 3)
Quarter: 2015Q4

REPORT INFORMATION
  Report Type: Report from Study
  Country: IT (occurrence: IT)
  Receive Date: 20130321
  Receipt Date: 20151104
  Transmission Date: 20160305
  Serious: Yes (Hospitalization)
  Sender: FDA-Public Use
  Company Number: PHHO2013IT001477

PATIENT
  Age: 40 Year
  Sex: Female
  Weight: 62.5 kg

DRUGS (10)
  1. SOM230 [Suspect]
     Active Substance: PASIREOTIDE
     Dosage: 1.8 MG
     Route: 058
     Dates: start: 20130313
  2. VITAMIN D [Concomitant]
     Active Substance: CHOLECALCIFEROL
     Indication: OSTEOPOROSIS
     Route: 065
     Dates: start: 2007
  3. SOM230 [Suspect]
     Active Substance: PASIREOTIDE
     Dosage: 0.3 MG
     Route: 058
     Dates: start: 20120914, end: 20120918
  4. SOM230 [Suspect]
     Active Substance: PASIREOTIDE
     Dosage: 0.6 MG
     Route: 058
     Dates: start: 20120919, end: 20121002
  5. SOM230 [Suspect]
     Active Substance: PASIREOTIDE
     Dosage: 1.2 MG
     Route: 058
     Dates: start: 20121003, end: 20130312
  6. EFFEXOR [Concomitant]
     Active Substance: VENLAFAXINE HYDROCHLORIDE
     Indication: DEPRESSION
     Dosage: 37.5 MG
     Route: 048
     Dates: start: 2011
  7. CALCIUM + VIT D [Concomitant]
     Active Substance: CALCIUM\VITAMIN D
     Indication: OSTEOPOROSIS
     Dosage: 250 MG PLUS 300 U
     Route: 048
     Dates: start: 201206
  8. CALCIUM [Concomitant]
     Active Substance: CALCIUM
     Indication: OSTEOPOROSIS
     Route: 065
     Dates: start: 2007
  9. FERROUS SULFATE [Concomitant]
     Active Substance: FERROUS SULFATE\FERROUS SULFATE, DRIED
     Indication: ANAEMIA
     Route: 065
     Dates: start: 2012
  10. SOM230 [Suspect]
     Active Substance: PASIREOTIDE
     Indication: PITUITARY-DEPENDENT CUSHING^S SYNDROME
     Dosage: 0.6 MG, BID
     Route: 058
     Dates: start: 20120912, end: 20120913

REACTIONS (6)
  - Asthenia [Recovered/Resolved]
  - Nausea [Recovered/Resolved]
  - Diarrhoea [Recovered/Resolved]
  - Cholelithiasis [Recovered/Resolved]
  - Biliary colic [Recovered/Resolved]
  - Abdominal pain [Unknown]

NARRATIVE: CASE EVENT DATE: 20120914
